FAERS Safety Report 5500214-3 (Version None)
Quarter: 2007Q4

REPORT INFORMATION
  Report Type: 
  Country: None (occurrence: None)
  Receive Date: 20071025
  Receipt Date: 20071009
  Transmission Date: 20080405
  Serious: Yes (Other)
  Sender: FDA-Public Use
  Company Number: 2006VX000812

PATIENT
  Age: 52 Year
  Sex: Male
  Weight: 69.8539 kg

DRUGS (5)
  1. INTERFERON ALFACON-1 [Suspect]
     Indication: HEPATITIS C
     Dosage: 15 UG; QD; SC
     Route: 058
     Dates: start: 20060711, end: 20060728
  2. RIBAVIRIN [Suspect]
     Indication: HEPATITIS C
     Dosage: 600 MG; QAM; PO, 200 MG, QPM; PO
     Route: 048
     Dates: start: 20060711, end: 20060728
  3. RIBAVIRIN [Suspect]
     Indication: HEPATITIS C
     Dosage: 600 MG; QAM; PO, 200 MG, QPM; PO
     Route: 048
     Dates: start: 20060711, end: 20060728
  4. ZOLOFT [Concomitant]
  5. PHENOBARBITAL TAB [Concomitant]

REACTIONS (14)
  - CHILLS [None]
  - DECREASED APPETITE [None]
  - DEHYDRATION [None]
  - FATIGUE [None]
  - FEELING ABNORMAL [None]
  - HEADACHE [None]
  - HYPOTENSION [None]
  - NAUSEA [None]
  - PALLOR [None]
  - PHOTOPHOBIA [None]
  - PYREXIA [None]
  - SENSATION OF HEAVINESS [None]
  - STOMACH DISCOMFORT [None]
  - WEIGHT DECREASED [None]
